FAERS Safety Report 15172737 (Version 1)
Quarter: 2018Q3

REPORT INFORMATION
  Report Type: Spontaneous
  Country: US (occurrence: US)
  Receive Date: 20180720
  Receipt Date: 20180720
  Transmission Date: 20181010
  Serious: No
  Sender: FDA-Public Use
  Company Number: US-ROCHE-1949596

PATIENT
  Age: 55 Year
  Sex: Female

DRUGS (1)
  1. PERJETA [Suspect]
     Active Substance: PERTUZUMAB
     Indication: GASTRIC CANCER
     Route: 042
     Dates: start: 20161213

REACTIONS (2)
  - Off label use [Unknown]
  - No adverse event [Unknown]
